FAERS Safety Report 10101840 (Version 2)
Quarter: 2014Q2

REPORT INFORMATION
  Report Type: Spontaneous
  Country: US (occurrence: US)
  Receive Date: 20140424
  Receipt Date: 20140502
  Transmission Date: 20141212
  Serious: Yes (Hospitalization, Other)
  Sender: FDA-Public Use
  Company Number: US-BAXTER-2014BAX019703

PATIENT
  Sex: Male

DRUGS (2)
  1. DIANEAL LOW CALCIUM [Suspect]
     Indication: RENAL FAILURE CHRONIC
     Route: 033
     Dates: start: 201305
  2. DIANEAL LOW CALCIUM [Suspect]
     Indication: RENAL FAILURE CHRONIC
     Route: 033
     Dates: start: 201305

REACTIONS (5)
  - Haemoglobin decreased [Recovering/Resolving]
  - Respiratory arrest [Recovering/Resolving]
  - Cardiac arrest [Recovering/Resolving]
  - Pulmonary oedema [Recovering/Resolving]
  - Haemorrhage [Recovering/Resolving]
